FAERS Safety Report 7447458-1 (Version None)
Quarter: 2011Q2

REPORT INFORMATION
  Report Type: 
  Country: None (occurrence: None)
  Receive Date: 20110421
  Receipt Date: 20110411
  Transmission Date: 20111010
  Serious: Yes (Other)
  Sender: FDA-Public Use
  Company Number: 1000020141

PATIENT
  Age: 92 Year
  Sex: Female

DRUGS (2)
  1. MEMANTINE [Suspect]
     Indication: DEMENTIA
     Dosage: 5 MG (5 MG, 1IN 1 D) ,ORAL, 10 MG (10 MG, 1 IN 1 D),ORAL
     Route: 048
  2. MEMANTINE [Suspect]
     Indication: DEMENTIA
     Dosage: 15 MG (15 MG, 1 IN 1 D),ORAL,10 MG (10 MG,1 IN 1 D),ORAL
     Route: 048

REACTIONS (3)
  - INCONTINENCE [None]
  - VISION BLURRED [None]
  - DRY EYE [None]
